FAERS Safety Report 8116074-0 (Version None)
Quarter: 2012Q1

REPORT INFORMATION
  Report Type: 
  Country: None (occurrence: None)
  Receive Date: 20120206
  Receipt Date: 20120203
  Transmission Date: 20120608
  Serious: Yes (Hospitalization, Other)
  Sender: FDA-Public Use
  Company Number: US-PFIZER INC-2012030786

PATIENT
  Sex: Female
  Weight: 72.109 kg

DRUGS (2)
  1. FLECTOR [Suspect]
     Indication: PAIN
     Dosage: UNK
     Dates: start: 20100101, end: 20120201
  2. OXYCODONE [Concomitant]
     Indication: PAIN
     Dosage: UNK

REACTIONS (5)
  - JOINT INJURY [None]
  - NECK INJURY [None]
  - ROAD TRAFFIC ACCIDENT [None]
  - TOOTH LOSS [None]
  - ARTHROPATHY [None]
